FAERS Safety Report 23414757 (Version 1)
Quarter: 2024Q1

REPORT INFORMATION
  Report Type: Spontaneous
  Country: US (occurrence: US)
  Receive Date: 20240118
  Receipt Date: 20240118
  Transmission Date: 20240410
  Serious: Yes (Hospitalization)
  Sender: FDA-Public Use
  Company Number: US-USP-004860

PATIENT
  Age: 60 Year
  Sex: Female

DRUGS (2)
  1. NITROGLYCERIN [Suspect]
     Active Substance: NITROGLYCERIN
     Indication: Acute coronary syndrome
     Dosage: BOLUS AND INFUSION
     Route: 065
  2. HEPARIN [Suspect]
     Active Substance: HEPARIN SODIUM
     Indication: Acute coronary syndrome
     Route: 065

REACTIONS (5)
  - Pain [Recovered/Resolved]
  - Product use in unapproved indication [Unknown]
  - Pulse absent [Recovered/Resolved]
  - Condition aggravated [Recovered/Resolved]
  - Livedo reticularis [Recovered/Resolved]
